FAERS Safety Report 12925638 (Version 1)
Quarter: 2016Q4

REPORT INFORMATION
  Report Type: Spontaneous
  Country: AU (occurrence: AU)
  Receive Date: 20161109
  Receipt Date: 20161109
  Transmission Date: 20170207
  Serious: Yes (Hospitalization)
  Sender: FDA-Public Use
  Company Number: PHHY2016AU151286

PATIENT
  Age: 68 Year
  Sex: Female

DRUGS (2)
  1. METOPROLOL. [Suspect]
     Active Substance: METOPROLOL
     Indication: HYPERTENSION
     Dosage: UNK
     Route: 041
  2. GLYCERYL TRINITRATE [Suspect]
     Active Substance: NITROGLYCERIN
     Indication: HYPERTENSION
     Dosage: UNK
     Route: 041

REACTIONS (8)
  - Cerebral hyperperfusion syndrome [Unknown]
  - Hypertension [Recovering/Resolving]
  - Muscular weakness [Recovered/Resolved]
  - Hypertonia [Recovered/Resolved]
  - Tremor [Recovered/Resolved]
  - Brain injury [Recovered/Resolved]
  - Partial seizures [Recovered/Resolved]
  - Myoclonus [Recovered/Resolved]
